FAERS Safety Report 9818063 (Version 3)
Quarter: 2014Q2

REPORT INFORMATION
  Report Type: Spontaneous
  Country: SE (occurrence: SE)
  Receive Date: 20140115
  Receipt Date: 20140617
  Transmission Date: 20141212
  Serious: Yes (Other)
  Sender: FDA-Public Use
  Company Number: SE-BEH-2014040030

PATIENT
  Age: 24 Year
  Sex: Male

DRUGS (3)
  1. HIZENTRA [Suspect]
     Dates: start: 201210
  2. HIZENTRA [Suspect]
     Route: 058
     Dates: start: 20131221, end: 20140104
  3. HIZENTRA [Suspect]
     Indication: SELECTIVE IGG SUBCLASS DEFICIENCY

REACTIONS (5)
  - Bedridden [Recovered/Resolved]
  - Fatigue [Recovered/Resolved]
  - Headache [Recovered/Resolved]
  - Pyrexia [Recovered/Resolved]
  - Malaise [Recovered/Resolved]
